FAERS Safety Report 6206779-0 (Version None)
Quarter: 2009Q2

REPORT INFORMATION
  Report Type: 
  Country: None (occurrence: None)
  Receive Date: 20090528
  Receipt Date: 20090521
  Transmission Date: 20091009
  Serious: Yes (Other)
  Sender: FDA-Public Use
  Company Number: CA-ELI_LILLY_AND_COMPANY-CA200905004794

PATIENT
  Age: 64 Year
  Sex: Female
  Weight: 65.76 kg

DRUGS (8)
  1. FORTEO [Suspect]
     Indication: OSTEOPOROSIS
     Dosage: 20 UG, DAILY (1/D)
     Route: 058
     Dates: start: 20080606
  2. PAXIL [Concomitant]
  3. DIOVAN [Concomitant]
  4. ATIVAN [Concomitant]
  5. CELEBREX [Concomitant]
  6. CALCIUM [Concomitant]
  7. VITAMIN D [Concomitant]
  8. LASIX [Concomitant]

REACTIONS (4)
  - FALL [None]
  - ILIUM FRACTURE [None]
  - RIB FRACTURE [None]
  - WEIGHT INCREASED [None]
